FAERS Safety Report 26066388 (Version 1)
Quarter: 2025Q4

REPORT INFORMATION
  Report Type: Spontaneous
  Country: US (occurrence: US)
  Receive Date: 20251119
  Receipt Date: 20251119
  Transmission Date: 20260118
  Serious: Yes (Other)
  Sender: NOVO NORDISK
  Company Number: US-NOVOPROD-1313240

PATIENT
  Age: 64 Year
  Sex: Female

DRUGS (1)
  1. NOVOLOG [Suspect]
     Active Substance: INSULIN ASPART
     Indication: Diabetes mellitus
     Dosage: 14 UNITS DAILY
     Route: 058
     Dates: start: 2024

REACTIONS (3)
  - Blood glucose increased [Unknown]
  - Oxygen therapy [Not Recovered/Not Resolved]
  - Wrong technique in product usage process [Unknown]
